FAERS Safety Report 13368649 (Version 5)
Quarter: 2017Q3

REPORT INFORMATION
  Report Type: Report from Study
  Country: US (occurrence: US)
  Receive Date: 20170324
  Receipt Date: 20170804
  Transmission Date: 20171127
  Serious: Yes (Hospitalization, Other)
  Sender: FDA-Public Use
  Company Number: US-PFIZER INC-2017081632

PATIENT
  Age: 47 Year
  Sex: Female

DRUGS (2)
  1. IBRANCE [Suspect]
     Active Substance: PALBOCICLIB
     Indication: BREAST CANCER
     Dosage: 125 MG, CYCLIC (DAILY FOR DAY 1- DAY 21 FOLLOWED BY 7 DAYS OFF EVERY 28 DAYS)
     Route: 048
     Dates: start: 20170209, end: 20170405
  2. IBRANCE [Suspect]
     Active Substance: PALBOCICLIB
     Dosage: 100 MG, DAILY
     Route: 048
     Dates: start: 20170406

REACTIONS (18)
  - Fatigue [Recovering/Resolving]
  - Diarrhoea [Unknown]
  - Febrile neutropenia [Unknown]
  - Vomiting [Unknown]
  - Pyrexia [Unknown]
  - Back pain [Unknown]
  - Leukopenia [Not Recovered/Not Resolved]
  - Spinal compression fracture [Unknown]
  - Localised oedema [Recovering/Resolving]
  - Pain [Not Recovered/Not Resolved]
  - Hip fracture [Unknown]
  - Anaemia [Unknown]
  - Bone marrow failure [Unknown]
  - Arthralgia [Unknown]
  - Bone pain [Unknown]
  - Dysgeusia [Unknown]
  - Oedema peripheral [Recovering/Resolving]
  - Gastrooesophageal reflux disease [Recovering/Resolving]

NARRATIVE: CASE EVENT DATE: 2017
